FAERS Safety Report 10149730 (Version 3)
Quarter: 2014Q2

REPORT INFORMATION
  Report Type: Spontaneous
  Country: AT (occurrence: AT)
  Receive Date: 20140502
  Receipt Date: 20140507
  Transmission Date: 20141212
  Serious: Yes (Hospitalization)
  Sender: FDA-Public Use
  Company Number: AT-FRI-1000062570

PATIENT
  Age: 35 Year
  Sex: Male
  Weight: 96 kg

DRUGS (18)
  1. ASENAPINE [Suspect]
     Dosage: 5 MG
     Route: 048
     Dates: start: 20120909, end: 20120909
  2. ASENAPINE [Suspect]
     Dosage: 10 MG
     Route: 048
     Dates: start: 20120910, end: 20120910
  3. ASENAPINE [Suspect]
     Dosage: 20 MG
     Route: 048
     Dates: start: 20120911, end: 20120919
  4. TEGRETOL [Suspect]
     Dosage: 400 MG
     Route: 048
     Dates: start: 20120731, end: 20120807
  5. TEGRETOL [Suspect]
     Dosage: 800 MG
     Route: 048
     Dates: start: 20120808, end: 20120827
  6. TEGRETOL [Suspect]
     Dosage: 1200 MG
     Route: 048
     Dates: start: 20120828, end: 20120919
  7. TRUXAL [Suspect]
     Dosage: 100 MG
     Route: 048
     Dates: start: 20120731, end: 20120806
  8. TRUXAL [Suspect]
     Dosage: 200 MG
     Route: 048
     Dates: start: 20120807, end: 20120827
  9. TRUXAL [Suspect]
     Dosage: 300 MG
     Route: 048
     Dates: start: 20120828, end: 20120903
  10. TRUXAL [Suspect]
     Dosage: 200 MG
     Route: 048
     Dates: start: 20120904, end: 20120907
  11. TRUXAL [Suspect]
     Dosage: 100 MG
     Route: 048
     Dates: start: 20120908
  12. SEROQUEL [Concomitant]
     Dosage: 800 MG
     Dates: start: 20120731, end: 20120831
  13. TEMESTA [Concomitant]
     Dosage: 7.5 MG
     Dates: start: 20120731, end: 20120822
  14. TEMESTA [Concomitant]
     Dosage: 6.5 MG
     Dates: start: 20120823, end: 20120906
  15. TEMESTA [Concomitant]
     Dosage: 4.5 MG
     Dates: start: 20120907, end: 20120914
  16. TEMESTA [Concomitant]
     Dosage: 2.5 MG
     Dates: start: 20120915
  17. AMINOVEN [Concomitant]
     Dosage: STRENGTH:1000, QD
     Dates: start: 20120917, end: 20120917
  18. CLAFORAN [Concomitant]
     Dosage: STRENGTH: 2, QD
     Dates: start: 20120917, end: 20120918

REACTIONS (3)
  - Drug-induced liver injury [Recovering/Resolving]
  - Rash [Unknown]
  - Chest pain [Unknown]
